FAERS Safety Report 7636431-6 (Version None)
Quarter: 2011Q3

REPORT INFORMATION
  Report Type: 
  Country: None (occurrence: None)
  Receive Date: 20110726
  Receipt Date: 20110711
  Transmission Date: 20111222
  Serious: Yes (Hospitalization)
  Sender: FDA-Public Use
  Company Number: PT-ARROW GEN-2011-08798

PATIENT
  Age: 18 Year
  Sex: Female

DRUGS (1)
  1. FLUOXETINE HCL [Suspect]
     Indication: DEPRESSION
     Route: 065

REACTIONS (1)
  - STEVENS-JOHNSON SYNDROME [None]
